FAERS Safety Report 4526439-1 (Version None)
Quarter: 2004Q4

REPORT INFORMATION
  Report Type: 
  Country: None (occurrence: None)
  Receive Date: 20041210
  Receipt Date: 20041126
  Transmission Date: 20050328
  Serious: Yes (Hospitalization)
  Sender: FDA-Public Use
  Company Number: FABR-10906

PATIENT
  Age: 52 Year
  Sex: Male
  Weight: 52 kg

DRUGS (18)
  1. FABRAZYME [Suspect]
     Indication: FABRY'S DISEASE
     Dosage: 70 MG Q2WKS IV
     Route: 042
     Dates: start: 20031015
  2. PREDNISOLONE [Concomitant]
  3. PREVISCAN [Concomitant]
  4. ACTONEL [Concomitant]
  5. CACIT D3 [Concomitant]
  6. TRIATEC [Concomitant]
  7. VASTAREL (TRIMETAZIDINE) [Concomitant]
  8. ASPIRIN [Concomitant]
  9. ELISOR [Concomitant]
  10. NITRIDERM (TRINITRINE) [Concomitant]
  11. DIFFU K [Concomitant]
  12. OMEPRAZOLE [Concomitant]
  13. EFFERALGAN CODEINE (PARACETAMOL CODEINE) [Concomitant]
  14. ADANCOR [Concomitant]
  15. ULTRALEVURE [Concomitant]
  16. THIAMINE HCL [Concomitant]
  17. VITAMIN B6 [Concomitant]
  18. ZOPICLONE [Concomitant]

REACTIONS (5)
  - ANOREXIA [None]
  - DEPRESSION [None]
  - MULTIPLE MYELOMA [None]
  - SPINAL DISORDER [None]
  - WEIGHT DECREASED [None]
